FAERS Safety Report 5579180-0 (Version None)
Quarter: 2008Q1

REPORT INFORMATION
  Report Type: 
  Country: None (occurrence: None)
  Receive Date: 20080102
  Receipt Date: 20071221
  Transmission Date: 20080703
  Serious: Yes (Other)
  Sender: FDA-Public Use
  Company Number: B0464312A

PATIENT
  Age: 45 Year
  Sex: Male

DRUGS (5)
  1. PYRIMETHAMINE [Suspect]
     Indication: CEREBRAL TOXOPLASMOSIS
     Dosage: 50MG PER DAY
     Route: 065
  2. ZIDOVUDINE [Suspect]
     Indication: HIV INFECTION
     Dosage: 400MG PER DAY
     Route: 065
     Dates: start: 20010827
  3. LAMIVUDINE [Suspect]
     Indication: HIV INFECTION
     Dosage: 300MG PER DAY
     Route: 065
     Dates: start: 20010827
  4. INDINIVIR SULFATE [Suspect]
     Indication: HIV INFECTION
     Dosage: 2400MG PER DAY
     Route: 065
     Dates: start: 20010827
  5. CLINDAMYCIN HCL [Concomitant]
     Indication: CEREBRAL TOXOPLASMOSIS
     Dosage: 1200MG PER DAY
     Route: 065

REACTIONS (3)
  - IMMUNE RECONSTITUTION SYNDROME [None]
  - PANCYTOPENIA [None]
  - PYREXIA [None]
